FAERS Safety Report 16537991 (Version 1)
Quarter: 2019Q3

REPORT INFORMATION
  Report Type: Spontaneous
  Country: US (occurrence: US)
  Receive Date: 20190708
  Receipt Date: 20190708
  Transmission Date: 20191004
  Serious: No
  Sender: FDA-Public Use
  Company Number: US-SA-2019SA077007

PATIENT
  Age: 16 Year
  Sex: Male

DRUGS (1)
  1. ADMELOG [Suspect]
     Active Substance: INSULIN LISPRO
     Indication: TYPE 1 DIABETES MELLITUS
     Dosage: 60 - 80 UNITS, TID
     Route: 065
     Dates: start: 201811

REACTIONS (2)
  - Blood glucose decreased [Unknown]
  - Device operational issue [Unknown]
